FAERS Safety Report 7541783-1 (Version None)
Quarter: 2011Q2

REPORT INFORMATION
  Report Type: 
  Country: None (occurrence: None)
  Receive Date: 20110613
  Receipt Date: 20110601
  Transmission Date: 20111010
  Serious: Yes (Other)
  Sender: FDA-Public Use
  Company Number: GB-JNJFOC-20110600721

PATIENT
  Sex: Male

DRUGS (17)
  1. INTELENCE [Suspect]
     Indication: HIV INFECTION
     Route: 048
     Dates: start: 20090301
  2. TRUVADA [Concomitant]
     Indication: HIV INFECTION
     Route: 065
  3. RALTEGRAVIR [Concomitant]
     Indication: HIV INFECTION
     Route: 065
  4. BETNOVATE [Concomitant]
     Route: 065
  5. ASPIRIN [Concomitant]
     Route: 065
  6. MICONAZOLE [Concomitant]
     Route: 065
  7. DIPROSALIC [Concomitant]
     Route: 047
  8. ELOCON [Concomitant]
     Route: 065
  9. SILDENAFIL CITRATE [Concomitant]
     Route: 065
  10. DAKTACORT [Concomitant]
     Route: 065
  11. COTRIM [Concomitant]
     Route: 065
  12. AMILORIDE HYDROCHLORIDE [Concomitant]
     Route: 065
  13. LANSOPRAZOLE [Concomitant]
     Route: 065
  14. EPIPEN [Concomitant]
     Route: 065
  15. FAMCICLOVIR [Concomitant]
     Route: 065
  16. PREDNISOLONE [Concomitant]
     Route: 065
  17. NITROGLYCERIN [Concomitant]
     Route: 065

REACTIONS (3)
  - SOMNOLENCE [None]
  - NODULAR REGENERATIVE HYPERPLASIA [None]
  - LETHARGY [None]
